FAERS Safety Report 14929629 (Version 1)
Quarter: 2018Q2

REPORT INFORMATION
  Report Type: Spontaneous
  Country: BR (occurrence: BR)
  Receive Date: 20180523
  Receipt Date: 20180523
  Transmission Date: 20180711
  Serious: Yes (Hospitalization)
  Sender: FDA-Public Use
  Company Number: PHHY2018BR005021

PATIENT
  Age: 49 Year
  Sex: Female

DRUGS (1)
  1. COSENTYX [Suspect]
     Active Substance: SECUKINUMAB
     Indication: ANKYLOSING SPONDYLITIS
     Dosage: 1 DF, UNK (FROM THE INDUCTION PHASE)
     Route: 065
     Dates: start: 20180503

REACTIONS (3)
  - Colitis [Unknown]
  - Diarrhoea [Unknown]
  - Abdominal pain [Unknown]
